FAERS Safety Report 5277991-2 (Version None)
Quarter: 2007Q1

REPORT INFORMATION
  Report Type: 
  Country: None (occurrence: None)
  Receive Date: 20070321
  Receipt Date: 20070306
  Transmission Date: 20070707
  Serious: Yes (Hospitalization)
  Sender: FDA-Public Use
  Company Number: B0461822A

PATIENT
  Age: 6 Year
  Sex: Male

DRUGS (2)
  1. HYCAMTIN [Suspect]
     Indication: NEUROBLASTOMA
     Dosage: UNK / UNK / INTRAVENOUS INFUSION
     Route: 042
  2. ETOPOSIDE [Suspect]
     Indication: NEUROBLASTOMA
     Dosage: UNK / UNK / INTRAVENOUS INFUSION
     Route: 042

REACTIONS (5)
  - ASPERGILLOSIS [None]
  - DISEASE PROGRESSION [None]
  - ENTEROCOLITIS [None]
  - FEBRILE NEUTROPENIA [None]
  - SOFT TISSUE INFECTION [None]
